FAERS Safety Report 5366105-6 (Version None)
Quarter: 2007Q2

REPORT INFORMATION
  Report Type: 
  Country: None (occurrence: None)
  Receive Date: 20070611
  Receipt Date: 20061229
  Transmission Date: 20071010
  Serious: Yes (Hospitalization, Other)
  Sender: FDA-Public Use
  Company Number: USA-2006-0024834

PATIENT
  Age: 27 Year
  Sex: Male
  Weight: 70.7 kg

DRUGS (3)
  1. OXYCONTIN [Suspect]
     Indication: INTERVERTEBRAL DISC DEGENERATION
     Dosage: 80 MG, Q12H, ORAL
     Route: 048
     Dates: start: 20050614, end: 20060727
  2. COCAINE (COCAINE) [Suspect]
     Indication: DRUG ABUSER
  3. ALCOHOL (ETHANOL) [Suspect]
     Indication: ALCOHOL USE

REACTIONS (2)
  - OVERDOSE [None]
  - SUBSTANCE ABUSE [None]
